FAERS Safety Report 12528444 (Version 1)
Quarter: 2016Q3

REPORT INFORMATION
  Report Type: Spontaneous
  Country: DE (occurrence: DE)
  Receive Date: 20160705
  Receipt Date: 20160705
  Transmission Date: 20161109
  Serious: Yes (Other)
  Sender: FDA-Public Use
  Company Number: DE-BAYER-2016-115679

PATIENT
  Age: 51 Year
  Sex: Female
  Weight: 82 kg

DRUGS (6)
  1. ADEMPAS [Suspect]
     Active Substance: RIOCIGUAT
     Indication: PULMONARY ARTERIAL HYPERTENSION
     Dosage: 2.5 MG, QD
     Route: 048
     Dates: start: 201601, end: 201603
  2. SILDENAFIL. [Concomitant]
     Active Substance: SILDENAFIL
     Indication: PULMONARY HYPERTENSION
     Dosage: 20 MG, TID
     Dates: start: 201303
  3. ILOMEDIN [Concomitant]
     Active Substance: ILOPROST
     Indication: PULMONARY HYPERTENSION
     Dosage: 5 ?G, 6ID
     Dates: start: 201410
  4. MARCUMAR [Concomitant]
     Active Substance: PHENPROCOUMON
     Indication: EMBOLISM
     Dosage: UNK
     Dates: start: 199408
  5. ADEMPAS [Suspect]
     Active Substance: RIOCIGUAT
     Indication: PULMONARY ARTERIAL HYPERTENSION
     Dosage: 2.5 MG, QD
     Route: 048
     Dates: start: 201604, end: 201605
  6. OPSUMIT [Concomitant]
     Active Substance: MACITENTAN
     Indication: PULMONARY HYPERTENSION
     Dosage: 10 MG, QD
     Dates: start: 201511

REACTIONS (3)
  - Asthenia [Recovered/Resolved]
  - Oedema peripheral [Recovered/Resolved]
  - Oxygen saturation decreased [Recovered/Resolved]
